FAERS Safety Report 24173234 (Version 2)
Quarter: 2024Q3

REPORT INFORMATION
  Report Type: Report from Study
  Country: FR (occurrence: FR)
  Receive Date: 20240805
  Receipt Date: 20240828
  Transmission Date: 20241017
  Serious: Yes (Hospitalization, Other)
  Sender: JAZZ
  Company Number: FR-JAZZ PHARMACEUTICALS-2023-FR-018514

PATIENT

DRUGS (10)
  1. EPIDIOLEX [Suspect]
     Active Substance: CANNABIDIOL
     Indication: Lennox-Gastaut syndrome
     Dosage: 5.3 MILLIGRAM/KILOGRAM, QD
     Route: 048
  2. EPIDIOLEX [Suspect]
     Active Substance: CANNABIDIOL
     Indication: Epilepsy
     Dosage: 200 MILLIGRAM, BID
     Dates: start: 20230628
  3. EPIDIOLEX [Suspect]
     Active Substance: CANNABIDIOL
     Indication: Severe myoclonic epilepsy of infancy
     Dosage: 4.4 MILLIGRAM/KILOGRAM, QD
     Route: 048
  4. EPIDIOLEX [Suspect]
     Active Substance: CANNABIDIOL
     Indication: Partial seizures
     Dosage: 4.7 MILLIGRAM/KILOGRAM, QD
     Route: 048
  5. EPIDIOLEX [Suspect]
     Active Substance: CANNABIDIOL
     Dosage: 100 MILLIGRAM/ DAY
     Dates: start: 202306
  6. EPIDIOLEX [Suspect]
     Active Substance: CANNABIDIOL
     Dosage: 1 ML MORNING AND EVENING
  7. RIVOTRIL [Suspect]
     Active Substance: CLONAZEPAM
     Indication: Epilepsy
     Dosage: 2 MILLIGRAM, TID
     Route: 048
     Dates: start: 202202
  8. BRIVIACT [Suspect]
     Active Substance: BRIVARACETAM
     Indication: Epilepsy
     Dosage: 25 MILLIGRAM, BID
     Dates: start: 202302, end: 202311
  9. TEGRETOL [Concomitant]
     Active Substance: CARBAMAZEPINE
     Indication: Product used for unknown indication
     Dosage: 400 MG IN THE MORNING, 400 MG AT MIDDAY AND 400 MG IN THE EVENING;
  10. FELBAMATE [Concomitant]
     Active Substance: FELBAMATE
     Indication: Product used for unknown indication
     Dosage: 600 MG IN THE MORNING, 600 MG AT MIDDAY AND 1200 MG IN THE EVENING;

REACTIONS (7)
  - Gastrostomy [Recovered/Resolved]
  - Status epilepticus [Recovered/Resolved with Sequelae]
  - Status epilepticus [Recovered/Resolved]
  - Dysphagia [Recovered/Resolved]
  - Somnolence [Recovered/Resolved]
  - Medical device site infection [Unknown]
  - Product administration interrupted [Unknown]

NARRATIVE: CASE EVENT DATE: 20230701
